FAERS Safety Report 9443016 (Version 4)
Quarter: 2013Q4

REPORT INFORMATION
  Report Type: Report from Study
  Country: US (occurrence: US)
  Receive Date: 20130806
  Receipt Date: 20131122
  Transmission Date: 20140711
  Serious: Yes (Hospitalization)
  Sender: FDA-Public Use
  Company Number: US-ACTELION-A-NJ2013-86585

PATIENT
  Age: 55 Year
  Sex: Female

DRUGS (13)
  1. TRACLEER [Suspect]
     Indication: PULMONARY ARTERIAL HYPERTENSION
     Dosage: 125 MG, BID
     Route: 048
     Dates: start: 20110116
  2. TRACLEER [Suspect]
     Dosage: 62.5 MG, BID
     Route: 048
     Dates: start: 20101218, end: 20110115
  3. TYVASO [Concomitant]
  4. COUMADIN [Concomitant]
  5. ASPIRIN [Concomitant]
  6. BUMEX [Concomitant]
  7. IRON [Concomitant]
  8. LEXAPRO [Concomitant]
  9. NORCO [Concomitant]
  10. POTASSIUM CHLORIDE [Concomitant]
  11. TRICOR [Concomitant]
  12. ZETIA [Concomitant]
  13. BUTALBITAL COMPOUND [Concomitant]

REACTIONS (12)
  - Right ventricular failure [Unknown]
  - Pulmonary hypertension [Unknown]
  - Dyspnoea [Unknown]
  - Hypoxia [Unknown]
  - Pulmonary arterial pressure increased [Unknown]
  - Somnolence [Unknown]
  - Dizziness [Unknown]
  - Fluid retention [Unknown]
  - Gastrooesophageal reflux disease [Recovering/Resolving]
  - Pneumonia [Recovering/Resolving]
  - Hypokalaemia [Recovering/Resolving]
  - Chest pain [Recovering/Resolving]
